FAERS Safety Report 17500235 (Version 1)
Quarter: 2020Q1

REPORT INFORMATION
  Report Type: Spontaneous
  Country: FR (occurrence: FR)
  Receive Date: 20200305
  Receipt Date: 20200305
  Transmission Date: 20200409
  Serious: Yes (Other)
  Sender: FDA-Public Use
  Company Number: FR-BIOGEN-2020BI00845362

PATIENT
  Age: 62 Year
  Sex: Male

DRUGS (1)
  1. TECFIDERA [Suspect]
     Active Substance: DIMETHYL FUMARATE
     Indication: PRODUCT USED FOR UNKNOWN INDICATION
     Route: 065
     Dates: start: 201812, end: 201901

REACTIONS (5)
  - Hepatic vascular thrombosis [Not Recovered/Not Resolved]
  - Abdominal pain [Recovered/Resolved]
  - Portal vein thrombosis [Not Recovered/Not Resolved]
  - Splenic artery thrombosis [Not Recovered/Not Resolved]
  - Thrombosis mesenteric vessel [Not Recovered/Not Resolved]

NARRATIVE: CASE EVENT DATE: 201901
